FAERS Safety Report 4570460-4 (Version None)
Quarter: 2005Q1

REPORT INFORMATION
  Report Type: 
  Country: None (occurrence: None)
  Receive Date: 20050204
  Receipt Date: 20050120
  Transmission Date: 20050727
  Serious: Yes (Hospitalization)
  Sender: FDA-Public Use
  Company Number: NL-JNJFOC-20050200120

PATIENT
  Sex: Female

DRUGS (22)
  1. BEPRIDIL [Suspect]
     Indication: ATRIAL FIBRILLATION
     Route: 049
  2. LOXOPROFEN SODIUM [Suspect]
     Route: 049
  3. WARFARIN SODIUM [Concomitant]
     Indication: ATRIAL FIBRILLATION
     Route: 049
  4. DIGOXIN [Concomitant]
     Indication: CARDIAC FAILURE
     Route: 049
  5. BUCOLOME [Concomitant]
     Indication: ATRIAL FIBRILLATION
     Route: 049
  6. DISOPYRAMIDE [Concomitant]
     Indication: ATRIAL FIBRILLATION
     Route: 049
  7. TRICHLORMETHIAZIDE [Concomitant]
     Indication: CARDIAC FAILURE
     Route: 049
  8. SPIRONOLACTONE [Concomitant]
     Indication: CARDIAC FAILURE
     Route: 049
  9. S.M. POWDER [Concomitant]
     Route: 049
  10. S.M. POWDER [Concomitant]
     Route: 049
  11. S.M. POWDER [Concomitant]
     Route: 049
  12. S.M. POWDER [Concomitant]
     Route: 049
  13. S.M. POWDER [Concomitant]
     Route: 049
  14. S.M. POWDER [Concomitant]
     Route: 049
  15. S.M. POWDER [Concomitant]
     Route: 049
  16. S.M. POWDER [Concomitant]
     Route: 049
  17. S.M. POWDER [Concomitant]
     Route: 049
  18. S.M. POWDER [Concomitant]
     Route: 049
  19. S.M. POWDER [Concomitant]
     Route: 049
  20. S.M. POWDER [Concomitant]
     Indication: GASTRITIS
     Route: 049
  21. METOPROLOL TARTRATE [Concomitant]
     Indication: ATRIAL FIBRILLATION
     Route: 049
  22. FUROSEMIDE [Concomitant]
     Indication: CARDIAC FAILURE
     Route: 049

REACTIONS (5)
  - CARDIAC FAILURE [None]
  - FALL [None]
  - HAEMORRHAGE [None]
  - LIVER DISORDER [None]
  - THROMBOCYTOPENIA [None]
